FAERS Safety Report 10073966 (Version 1)
Quarter: 2014Q2

REPORT INFORMATION
  Report Type: Report from Study
  Country: US (occurrence: US)
  Receive Date: 20140412
  Receipt Date: 20140412
  Transmission Date: 20141212
  Serious: Yes (Other)
  Sender: FDA-Public Use
  Company Number: US-009507513-1404USA004941

PATIENT
  Sex: 0

DRUGS (4)
  1. BOCEPREVIR [Suspect]
     Indication: CHRONIC HEPATITIS C
     Route: 065
  2. RIBAVIRIN [Suspect]
     Indication: CHRONIC HEPATITIS C
     Dosage: UNK
  3. PEGINTERFERON ALFA-2A [Suspect]
     Indication: CHRONIC HEPATITIS C
     Dosage: UNK
  4. TELAPREVIR [Suspect]
     Indication: CHRONIC HEPATITIS C
     Dosage: UNK

REACTIONS (1)
  - Anaemia [Unknown]
